FAERS Safety Report 12053717 (Version 4)
Quarter: 2016Q2

REPORT INFORMATION
  Report Type: Report from Study
  Country: US (occurrence: US)
  Receive Date: 20160209
  Receipt Date: 20160412
  Transmission Date: 20160815
  Serious: Yes (Other)
  Sender: FDA-Public Use
  Company Number: US-TEVA-632879USA

PATIENT
  Age: 49 Year
  Sex: Male

DRUGS (1)
  1. CLOZAPINE. [Suspect]
     Active Substance: CLOZAPINE
     Route: 065
     Dates: end: 201602

REACTIONS (2)
  - Agranulocytosis [Recovering/Resolving]
  - Granulocytopenia [Unknown]

NARRATIVE: CASE EVENT DATE: 20160202
